FAERS Safety Report 26093962 (Version 1)
Quarter: 2025Q4

REPORT INFORMATION
  Report Type: Spontaneous
  Country: EU (occurrence: EU)
  Receive Date: 20251126
  Receipt Date: 20251126
  Transmission Date: 20260117
  Serious: Yes (Other)
  Sender: ALEXION PHARMACEUTICALS
  Company Number: None

PATIENT
  Age: 2 Year
  Sex: Male
  Weight: 11 kg

DRUGS (3)
  1. PULMICORT TURBUHALER [Suspect]
     Active Substance: BUDESONIDE
     Indication: Asthma
     Dosage: UNK
     Route: 065
  2. PREDNISOLONE SODIUM METAZOATE [Suspect]
     Active Substance: PREDNISOLONE SODIUM METAZOATE
     Indication: Asthma
     Dosage: UNK
     Dates: start: 20251029, end: 20251031
  3. ALBUTEROL [Concomitant]
     Active Substance: ALBUTEROL
     Indication: Asthma

REACTIONS (4)
  - Abdominal pain [Unknown]
  - Behaviour disorder [Unknown]
  - Sleep disorder [Unknown]
  - Failure to thrive [Unknown]

NARRATIVE: CASE EVENT DATE: 20251029
